FAERS Safety Report 20223149 (Version 1)
Quarter: 2021Q4

REPORT INFORMATION
  Report Type: Spontaneous
  Country: US (occurrence: US)
  Receive Date: 20211223
  Receipt Date: 20211223
  Transmission Date: 20220304
  Serious: Yes (Hospitalization)
  Sender: FDA-Public Use
  Company Number: US-MYLANLABS-2021M1094545

PATIENT
  Age: 49 Year
  Sex: Female

DRUGS (9)
  1. PREDNISONE [Suspect]
     Active Substance: PREDNISONE
     Indication: Systemic lupus erythematosus
     Dosage: 10 MILLIGRAM, BID
     Route: 065
  2. FLUTICASONE PROPIONATE\SALMETEROL XINAFOATE [Suspect]
     Active Substance: FLUTICASONE PROPIONATE\SALMETEROL XINAFOATE
     Indication: Asthma
     Dosage: 50/100 2 PUFFS
     Route: 065
  3. HYDROCODONE [Concomitant]
     Active Substance: HYDROCODONE
     Indication: Product used for unknown indication
     Dosage: AS NEEDED
     Route: 065
  4. METOPROLOL [Concomitant]
     Active Substance: METOPROLOL
     Indication: Hypertension
     Dosage: 25 MILLIGRAM
     Route: 065
  5. CLONIDINE [Concomitant]
     Active Substance: CLONIDINE
     Indication: Hypertension
     Dosage: UNK UNK, TID
     Route: 065
  6. THIAMINE [Concomitant]
     Active Substance: THIAMINE
     Indication: Vitamin supplementation
     Dosage: 100 MILLIGRAM, QD
     Route: 065
  7. ALBUTEROL [Concomitant]
     Active Substance: ALBUTEROL
     Indication: Asthma
     Dosage: AS NEEDED
     Route: 045
  8. FOLIC ACID [Concomitant]
     Active Substance: FOLIC ACID
     Indication: Vitamin supplementation
     Dosage: 1 MILLIGRAM, QD
     Route: 065
  9. HYDROCHLOROTHIAZIDE [Concomitant]
     Active Substance: HYDROCHLOROTHIAZIDE
     Indication: Hypertension
     Dosage: 25 MILLIGRAM, QD
     Route: 065

REACTIONS (6)
  - Leukopenia [Recovering/Resolving]
  - Escherichia infection [Recovering/Resolving]
  - Enterococcal infection [Recovering/Resolving]
  - Bacteroides infection [Recovering/Resolving]
  - Morganella infection [Recovering/Resolving]
  - Pneumoperitoneum [Recovering/Resolving]
